FAERS Safety Report 4530804-6 (Version None)
Quarter: 2004Q4

REPORT INFORMATION
  Report Type: 
  Country: None (occurrence: None)
  Receive Date: 20041129
  Receipt Date: 20041006
  Transmission Date: 20050328
  Serious: Yes (Hospitalization)
  Sender: FDA-Public Use
  Company Number: US_0406103739

PATIENT
  Age: 35 Year
  Sex: Male

DRUGS (3)
  1. ZYPREXA [Suspect]
     Indication: SCHIZOPHRENIA
     Dosage: 20 MG AT BEDTIME
     Dates: start: 19990720, end: 20000718
  2. ATIVAN [Concomitant]
  3. COGENTIN [Concomitant]

REACTIONS (13)
  - AGITATION [None]
  - ANGER [None]
  - ANXIETY [None]
  - DEPRESSION [None]
  - DIABETES MELLITUS [None]
  - DIABETIC KETOACIDOSIS [None]
  - INSOMNIA [None]
  - IRRITABILITY [None]
  - PARANOIA [None]
  - RESTLESSNESS [None]
  - SOMNOLENCE [None]
  - THINKING ABNORMAL [None]
  - WEIGHT INCREASED [None]
